FAERS Safety Report 22050173 (Version 2)
Quarter: 2023Q1

REPORT INFORMATION
  Report Type: Spontaneous
  Country: US (occurrence: US)
  Receive Date: 20230301
  Receipt Date: 20230302
  Transmission Date: 20230417
  Serious: No
  Sender: FDA-Public Use
  Company Number: US-SANOFI-01511349

PATIENT
  Age: 69 Year
  Sex: Female

DRUGS (2)
  1. TOUJEO [Suspect]
     Active Substance: INSULIN GLARGINE
     Indication: Diabetes mellitus
     Dosage: UNK
  2. TOUJEO [Suspect]
     Active Substance: INSULIN GLARGINE
     Dosage: 52 IU, QD
     Dates: start: 2022

REACTIONS (3)
  - Alopecia [Unknown]
  - Joint injury [Unknown]
  - Pulmonary mass [Unknown]
